FAERS Safety Report 7751884-0 (Version None)
Quarter: 2011Q3

REPORT INFORMATION
  Report Type: 
  Country: None (occurrence: None)
  Receive Date: 20110915
  Receipt Date: 20110901
  Transmission Date: 20111222
  Serious: Yes (Other)
  Sender: FDA-Public Use
  Company Number: US-JNJFOC-20110901998

PATIENT
  Age: 53 Year
  Sex: Female

DRUGS (6)
  1. BENADRYL ALLERGY KAPGEL [Suspect]
     Route: 048
  2. MAXAIR [Concomitant]
     Indication: COMPLEX REGIONAL PAIN SYNDROME
     Dosage: 200/50 TWO PUFFS AS NEEDED FOR THREE TO FOUR YEARS
  3. ACETAMINOPHEN [Suspect]
     Indication: PAIN
     Dosage: TWO TIMES PER DAY OR AS NEEDED FOR TWO TO THREE YEARS.
     Route: 048
  4. ACETAMINOPHEN [Suspect]
     Route: 048
  5. BENADRYL ALLERGY KAPGEL [Suspect]
     Indication: MULTIPLE ALLERGIES
     Dosage: ONE KAPGEL TWO TIMES PER DAY
     Route: 048
     Dates: start: 20100501, end: 20110829
  6. NEURONTIN [Concomitant]
     Indication: COMPLEX REGIONAL PAIN SYNDROME
     Dosage: NINE YEARS
     Route: 048

REACTIONS (7)
  - PRODUCT QUALITY ISSUE [None]
  - RENAL FAILURE [None]
  - DYSPEPSIA [None]
  - VOMITING [None]
  - NAUSEA [None]
  - HEPATIC FAILURE [None]
  - ABDOMINAL PAIN UPPER [None]
